FAERS Safety Report 6802970-0 (Version None)
Quarter: 2010Q2

REPORT INFORMATION
  Report Type: 
  Country: None (occurrence: None)
  Receive Date: 20100628
  Receipt Date: 20100615
  Transmission Date: 20101027
  Serious: Yes (Hospitalization, Other)
  Sender: FDA-Public Use
  Company Number: PHHY2010JP20575

PATIENT
  Sex: Female
  Weight: 54.7 kg

DRUGS (8)
  1. TEGRETOL [Suspect]
     Indication: TRIGEMINAL NEURALGIA
     Dosage: 200 MG DAILY
     Route: 048
     Dates: end: 20100402
  2. NEUROTROPIN [Suspect]
     Indication: TRIGEMINAL NEURALGIA
     Dosage: 4 IU, BID
     Route: 048
     Dates: end: 20100402
  3. LOXONIN [Suspect]
     Dosage: 2 DF DAILY
     Route: 048
     Dates: end: 20100329
  4. BROTIZOLAM [Concomitant]
     Indication: INSOMNIA
     Dosage: 0.25 MG
     Route: 048
  5. MYSLEE [Concomitant]
     Indication: INSOMNIA
     Dosage: 5 MG
     Route: 048
  6. ALLELOCK [Concomitant]
     Indication: PRURITUS
     Dosage: 10MG
     Route: 048
  7. POLYCARBOPHIL CALCIUM [Concomitant]
     Indication: IRRITABLE BOWEL SYNDROME
     Dosage: 1500MG
     Route: 048
  8. TIZANIDINE HCL [Concomitant]
     Indication: TRIGEMINAL NEURALGIA
     Dosage: 1 MG
     Route: 048

REACTIONS (9)
  - ANAEMIA [None]
  - APLASIA PURE RED CELL [None]
  - BLOOD PRESSURE DECREASED [None]
  - DIZZINESS [None]
  - DRUG DOSE OMISSION [None]
  - GASTROINTESTINAL HAEMORRHAGE [None]
  - HEART RATE DECREASED [None]
  - MALAISE [None]
  - MARROW HYPERPLASIA [None]
